FAERS Safety Report 18575320 (Version 1)
Quarter: 2020Q4

REPORT INFORMATION
  Report Type: Spontaneous
  Country: US (occurrence: US)
  Receive Date: 20201203
  Receipt Date: 20201203
  Transmission Date: 20210114
  Serious: No
  Sender: FDA-Public Use
  Company Number: US-PFIZER INC-2020473378

PATIENT
  Age: 71 Year
  Sex: Female

DRUGS (14)
  1. EUCRISA [Suspect]
     Active Substance: CRISABOROLE
     Indication: DERMATITIS ATOPIC
     Dosage: UNK, 2X/DAY (APPLY TO AA BODY BID)
     Route: 061
  2. EUCRISA [Suspect]
     Active Substance: CRISABOROLE
     Indication: PRURITUS
  3. CLODERM [CLOTRIMAZOLE] [Suspect]
     Active Substance: CLOTRIMAZOLE
     Indication: PRURITUS
  4. EUCRISA [Suspect]
     Active Substance: CRISABOROLE
     Indication: RASH ERYTHEMATOUS
  5. CLODERM [CLOTRIMAZOLE] [Suspect]
     Active Substance: CLOTRIMAZOLE
     Indication: DERMATITIS ATOPIC
     Dosage: AAA ON BODY BID PRN X 2 WEEKS ON/OFF AVOID EYELIDS
     Route: 061
  6. CLODERM [CLOTRIMAZOLE] [Suspect]
     Active Substance: CLOTRIMAZOLE
     Indication: SKIN ABRASION
  7. CLODERM [CLOTRIMAZOLE] [Suspect]
     Active Substance: CLOTRIMAZOLE
     Indication: DYSHIDROTIC ECZEMA
  8. CLODERM [CLOTRIMAZOLE] [Suspect]
     Active Substance: CLOTRIMAZOLE
     Indication: SCAB
  9. CLODERM [CLOTRIMAZOLE] [Suspect]
     Active Substance: CLOTRIMAZOLE
     Indication: RASH ERYTHEMATOUS
  10. CLODERM [CLOTRIMAZOLE] [Suspect]
     Active Substance: CLOTRIMAZOLE
     Indication: IMPETIGO
  11. EUCRISA [Suspect]
     Active Substance: CRISABOROLE
     Indication: SCAB
  12. EUCRISA [Suspect]
     Active Substance: CRISABOROLE
     Indication: SKIN ABRASION
  13. EUCRISA [Suspect]
     Active Substance: CRISABOROLE
     Indication: IMPETIGO
  14. EUCRISA [Suspect]
     Active Substance: CRISABOROLE
     Indication: DYSHIDROTIC ECZEMA

REACTIONS (2)
  - Drug ineffective [Unknown]
  - Dermatitis atopic [Unknown]
